FAERS Safety Report 19280263 (Version 1)
Quarter: 2021Q2

REPORT INFORMATION
  Report Type: Spontaneous
  Country: LV (occurrence: LV)
  Receive Date: 20210520
  Receipt Date: 20210520
  Transmission Date: 20210717
  Serious: Yes (Other)
  Sender: FDA-Public Use
  Company Number: LV-BAYER-2020-245822

PATIENT
  Age: 28 Year
  Sex: Female

DRUGS (1)
  1. KYLEENA [Suspect]
     Active Substance: LEVONORGESTREL
     Indication: CONTRACEPTION
     Dosage: 17.5 ?G PER DAY CONTINUOUSLY
     Route: 015
     Dates: start: 20181031

REACTIONS (5)
  - Foetal death [None]
  - Drug ineffective [None]
  - Premature separation of placenta [None]
  - Pregnancy with contraceptive device [Recovered/Resolved]
  - Device dislocation [None]

NARRATIVE: CASE EVENT DATE: 20201022
